FAERS Safety Report 18351925 (Version 3)
Quarter: 2020Q4

REPORT INFORMATION
  Report Type: Spontaneous
  Country: US (occurrence: US)
  Receive Date: 20201006
  Receipt Date: 20201209
  Transmission Date: 20210114
  Serious: No
  Sender: FDA-Public Use
  Company Number: US-ASTRAZENECA-2020SF26403

PATIENT
  Age: 70 Year
  Sex: Female
  Weight: 104.3 kg

DRUGS (4)
  1. BYDUREON BCISE [Suspect]
     Active Substance: EXENATIDE
     Indication: TYPE 2 DIABETES MELLITUS
     Route: 058
  2. HYDRALAZINE HCL [Concomitant]
     Active Substance: HYDRALAZINE HYDROCHLORIDE
     Indication: BLOOD PRESSURE ABNORMAL
     Dosage: 10.0MG UNKNOWN
     Dates: start: 20170101
  3. BUMETANIDE. [Concomitant]
     Active Substance: BUMETANIDE
     Indication: ILL-DEFINED DISORDER
     Dosage: 1.0MG UNKNOWN
     Route: 065
     Dates: start: 20170101
  4. BYDUREON [Suspect]
     Active Substance: EXENATIDE
     Indication: TYPE 2 DIABETES MELLITUS
     Route: 065
     Dates: start: 2017

REACTIONS (4)
  - Device issue [Unknown]
  - Hypertension [Unknown]
  - Incorrect dose administered by device [Unknown]
  - Device dispensing error [Unknown]

NARRATIVE: CASE EVENT DATE: 2017
